FAERS Safety Report 6336306-9 (Version None)
Quarter: 2009Q3

REPORT INFORMATION
  Report Type: 
  Country: None (occurrence: None)
  Receive Date: 20090901
  Receipt Date: 20090820
  Transmission Date: 20100115
  Serious: Yes (Hospitalization)
  Sender: FDA-Public Use
  Company Number: BE-PFIZER INC-2009257833

PATIENT
  Age: 65 Year

DRUGS (16)
  1. BLINDED *NO SUBJECT DRUG [Suspect]
     Indication: PROSTATE CANCER
     Dosage: 37.5 MG, 1X/DAY
     Route: 048
     Dates: start: 20090707, end: 20090815
  2. BLINDED *PLACEBO [Suspect]
     Indication: PROSTATE CANCER
     Dosage: 37.5 MG, 1X/DAY
     Route: 048
     Dates: start: 20090707, end: 20090815
  3. BLINDED SUNITINIB MALATE [Suspect]
     Indication: PROSTATE CANCER
     Dosage: 37.5 MG, 1X/DAY
     Route: 048
     Dates: start: 20090707, end: 20090815
  4. PREDNISONE [Suspect]
     Indication: PROSTATE CANCER
     Dosage: 5 MG, 2X/DAY
     Route: 048
     Dates: start: 20090707, end: 20090815
  5. PRAZEPAM [Concomitant]
     Indication: PAIN
     Dosage: UNK
     Route: 048
     Dates: start: 20071001
  6. MEDROL [Concomitant]
     Indication: PAIN
     Dosage: 24 MG, 1X/DAY
     Route: 048
     Dates: start: 20070101
  7. DURAGESIC-100 [Concomitant]
     Indication: PAIN
     Dosage: 225 UG, UNK
     Route: 062
     Dates: start: 20071001
  8. MORPHINE [Concomitant]
     Indication: PAIN
     Dosage: 10 MG, 3X/DAY
     Route: 048
     Dates: start: 20081001
  9. BISOPROLOL [Concomitant]
     Indication: HYPERTENSION
     Dosage: UNK
     Route: 048
     Dates: start: 20051101
  10. LYRICA [Concomitant]
     Indication: PAIN
     Dosage: 75 MG, 2X/DAY
     Route: 048
     Dates: start: 20090707
  11. LITICAN [Concomitant]
     Indication: NAUSEA
     Dosage: 50 MG, 4X/DAY
     Route: 048
     Dates: start: 20090722
  12. LITICAN [Concomitant]
     Indication: VOMITING
  13. LOPERAMIDE [Concomitant]
     Indication: DIARRHOEA
     Dosage: 2 MG, 1X/DAY
     Route: 048
     Dates: start: 20090713
  14. DOXYCYCLINE [Concomitant]
     Indication: PERIODONTAL DISEASE
     Dosage: 200 MG, 1X/DAY
     Route: 048
     Dates: start: 20090804
  15. CORSODYL [Concomitant]
     Indication: PERIODONTAL DISEASE
     Dosage: 5 ML, 1X/DAY
     Route: 061
     Dates: start: 20090804
  16. PARACETAMOL [Concomitant]
     Indication: PAIN
     Dosage: 1 G, 1X/DAY
     Dates: start: 20090804

REACTIONS (1)
  - PERFORMANCE STATUS DECREASED [None]
